FAERS Safety Report 13714327 (Version 1)
Quarter: 2017Q3

REPORT INFORMATION
  Report Type: Spontaneous
  Country: US (occurrence: US)
  Receive Date: 20170704
  Receipt Date: 20170704
  Transmission Date: 20171127
  Serious: No
  Sender: FDA-Public Use
  Company Number: US-ASTRAZENECA-2017SE66328

PATIENT
  Sex: Female
  Weight: 132.4 kg

DRUGS (4)
  1. METFORMIN [Concomitant]
     Active Substance: METFORMIN HYDROCHLORIDE
     Indication: TYPE 2 DIABETES MELLITUS
     Route: 048
     Dates: start: 2012
  2. NPH 70 30 [Concomitant]
     Indication: TYPE 2 DIABETES MELLITUS
     Dosage: 32 UNITS IN THE MORNING AND 30 UNITS AT NIGHT
     Route: 058
     Dates: start: 2017
  3. BYETTA [Suspect]
     Active Substance: EXENATIDE
     Indication: TYPE 2 DIABETES MELLITUS
     Route: 058
     Dates: start: 2014
  4. BYETTA [Suspect]
     Active Substance: EXENATIDE
     Indication: TYPE 2 DIABETES MELLITUS
     Route: 058
     Dates: start: 20170613

REACTIONS (3)
  - Drug dose omission [Unknown]
  - Nausea [Not Recovered/Not Resolved]
  - Product storage error [Unknown]
